FAERS Safety Report 21057649 (Version 3)
Quarter: 2022Q3

REPORT INFORMATION
  Report Type: Spontaneous
  Country: CA (occurrence: CA)
  Receive Date: 20220708
  Receipt Date: 20220801
  Transmission Date: 20221027
  Serious: No
  Sender: FDA-Public Use
  Company Number: CA-PFIZER INC-202200938120

PATIENT
  Age: 70 Year
  Sex: Female

DRUGS (4)
  1. SULFASALAZINE [Suspect]
     Active Substance: SULFASALAZINE
     Indication: Rheumatoid arthritis
     Dosage: 100 MG, 2X/DAY, DISCONTINUED
     Route: 048
     Dates: start: 20090310, end: 2018
  2. ETANERCEPT [Concomitant]
     Active Substance: ETANERCEPT
     Indication: Rheumatoid arthritis
     Dosage: 1 DF-DOSAGE NOT AVAILABLE- DISCONTINUED
     Route: 065
     Dates: start: 20180530, end: 20220705
  3. METHOTREXATE [Concomitant]
     Active Substance: METHOTREXATE
     Indication: Rheumatoid arthritis
     Dosage: 10 MG, WEEKLY, DISCONTINUED
     Route: 065
     Dates: start: 20120730, end: 20220705
  4. PLAQUENIL [Concomitant]
     Active Substance: HYDROXYCHLOROQUINE SULFATE
     Dosage: 400 MG, 1X/DAY
     Route: 048
     Dates: start: 20121120, end: 20220705

REACTIONS (1)
  - Drug ineffective [Unknown]
